FAERS Safety Report 25827381 (Version 1)
Quarter: 2025Q3

REPORT INFORMATION
  Report Type: Spontaneous
  Country: EU (occurrence: EU)
  Receive Date: 20250920
  Receipt Date: 20250920
  Transmission Date: 20251020
  Serious: Yes (Other)
  Sender: ALEXION PHARMACEUTICALS
  Company Number: EU-PFIZER INC-PV202500108817

PATIENT
  Age: 65 Year
  Sex: Female

DRUGS (6)
  1. FULVESTRANT [Suspect]
     Active Substance: FULVESTRANT
     Indication: Breast cancer metastatic
     Route: 065
  2. FULVESTRANT [Suspect]
     Active Substance: FULVESTRANT
  3. PALBOCICLIB [Suspect]
     Active Substance: PALBOCICLIB
     Indication: Breast cancer metastatic
     Route: 065
  4. VINORELBINE [Concomitant]
     Active Substance: VINORELBINE TARTRATE
     Indication: Chemotherapy
  5. VINORELBINE [Concomitant]
     Active Substance: VINORELBINE TARTRATE
     Indication: Breast cancer metastatic
  6. EXEMESTANE [Concomitant]
     Active Substance: EXEMESTANE
     Indication: Breast cancer metastatic

REACTIONS (6)
  - Breast cancer metastatic [Unknown]
  - Malignant neoplasm progression [Unknown]
  - Metastases to bone [Unknown]
  - Metastases to liver [Unknown]
  - Metastases to lung [Unknown]
  - Neutropenia [Unknown]

NARRATIVE: CASE EVENT DATE: 20211101
